FAERS Safety Report 20332020 (Version 1)
Quarter: 2022Q1

REPORT INFORMATION
  Report Type: Report from Study
  Country: DE (occurrence: DE)
  Receive Date: 20220113
  Receipt Date: 20220113
  Transmission Date: 20220423
  Serious: Yes (Hospitalization, Disabling, Other)
  Sender: FDA-Public Use
  Company Number: DE-Clinigen Group PLC/ Clinigen Healthcare Ltd-DE-CLGN-22-00006

PATIENT
  Age: 59 Year
  Sex: Female
  Weight: 107.5 kg

DRUGS (4)
  1. PROLEUKIN [Suspect]
     Active Substance: ALDESLEUKIN
     Indication: Metastatic malignant melanoma
     Route: 042
     Dates: start: 20190924, end: 20190926
  2. FLUDARABINE [Suspect]
     Active Substance: FLUDARABINE PHOSPHATE
     Indication: Metastatic malignant melanoma
     Route: 042
     Dates: start: 20190919, end: 20190923
  3. CYCLOPHOSPHAMIDE [Suspect]
     Active Substance: CYCLOPHOSPHAMIDE
     Indication: Metastatic malignant melanoma
     Route: 042
     Dates: start: 20190917, end: 20190918
  4. LIFILEUCEL [Suspect]
     Active Substance: LIFILEUCEL
     Indication: Metastatic malignant melanoma
     Route: 042
     Dates: start: 20190924, end: 20190924

REACTIONS (4)
  - Cytokine release syndrome [Recovered/Resolved]
  - Capillary leak syndrome [Recovered/Resolved]
  - Pulmonary oedema [Recovered/Resolved]
  - Blood pressure decreased [Recovered/Resolved]

NARRATIVE: CASE EVENT DATE: 20190924
